FAERS Safety Report 16864369 (Version 1)
Quarter: 2019Q3

REPORT INFORMATION
  Report Type: Report from Study
  Country: None (occurrence: US)
  Receive Date: 20190928
  Receipt Date: 20190928
  Transmission Date: 20191005
  Serious: Yes (Other)
  Sender: FDA-Public Use
  Company Number: US-ABBVIE-19K-163-2938948-00

PATIENT
  Age: 74 Year
  Sex: Female

DRUGS (1)
  1. HUMIRA [Suspect]
     Active Substance: ADALIMUMAB
     Indication: COLITIS ULCERATIVE
     Route: 058

REACTIONS (7)
  - Fall [Recovered/Resolved]
  - Wrong technique in product usage process [Unknown]
  - Dizziness [Recovered/Resolved]
  - Eye operation [Unknown]
  - Fear [Unknown]
  - Loss of consciousness [Recovered/Resolved]
  - Incorrect dose administered [Unknown]

NARRATIVE: CASE EVENT DATE: 20190915
